FAERS Safety Report 9150043 (Version 1)
Quarter: 2013Q1

REPORT INFORMATION
  Report Type: Spontaneous
  Country: US (occurrence: None)
  Receive Date: 20130201
  Receipt Date: 20130201
  Transmission Date: 20140127
  Serious: Yes (Hospitalization)
  Sender: FDA-Public Use
  Company Number: DKLU1087959

PATIENT
  Age: 16 Year
  Sex: Female
  Weight: 28 kg

DRUGS (5)
  1. SABRIL (FOR ORAL SOLUTION) (SABRIL) (VIGABATRIN) (POWDER FOR ORAL SOLUTION) [Suspect]
     Indication: COMPLEX PARTIAL SEIZURES
     Route: 048
     Dates: start: 20120713
  2. DIASTAT (DIAZEPAM) [Concomitant]
  3. ATIVAN (LORAZEPAM) [Concomitant]
  4. VIMPAT (LACOSAMIDE) [Concomitant]
  5. PHENOBARBITAL (PHENOBARBITAL) [Concomitant]

REACTIONS (4)
  - Status epilepticus [None]
  - Pneumonia [None]
  - Respiratory distress [None]
  - Convulsion [None]
